FAERS Safety Report 18080646 (Version 2)
Quarter: 2021Q2

REPORT INFORMATION
  Report Type: Spontaneous
  Country: CA (occurrence: CA)
  Receive Date: 20200728
  Receipt Date: 20210628
  Transmission Date: 20210717
  Serious: Yes (Life-Threatening, Hospitalization)
  Sender: FDA-Public Use
  Company Number: CA-TEVA-2020-CA-1806076

PATIENT
  Age: 8 Year
  Sex: Male
  Weight: 28 kg

DRUGS (4)
  1. ACETAMINOPHEN. [Concomitant]
     Active Substance: ACETAMINOPHEN
  2. MORPHINE [Concomitant]
     Active Substance: MORPHINE
  3. ADVIL [Concomitant]
     Active Substance: IBUPROFEN
  4. AMOXICILLIN. [Suspect]
     Active Substance: AMOXICILLIN
     Indication: VIRAL INFECTION
     Route: 048

REACTIONS (9)
  - Conjunctivitis [Recovered/Resolved]
  - Chapped lips [Recovered/Resolved]
  - Eye discharge [Recovered/Resolved]
  - Intradialytic parenteral nutrition [Recovered/Resolved]
  - Mycoplasma infection [Recovered/Resolved]
  - Rash papular [Recovered/Resolved]
  - Stevens-Johnson syndrome [Recovered/Resolved]
  - Stomatitis [Recovered/Resolved]
  - Mycoplasma test [Recovered/Resolved]
